FAERS Safety Report 9364555 (Version 4)
Quarter: 2014Q2

REPORT INFORMATION
  Report Type: Spontaneous
  Country: JP (occurrence: None)
  Receive Date: 20130619
  Receipt Date: 20140505
  Transmission Date: 20141212
  Serious: Yes (Hospitalization)
  Sender: FDA-Public Use
  Company Number: SYM-2013-04043

PATIENT
  Age: 15 Year
  Sex: Male
  Weight: 16.5 kg

DRUGS (8)
  1. BUPHENYL [Suspect]
     Indication: PRODUCT USED FOR UNKNOWN INDICATION
     Route: 048
     Dates: start: 201302, end: 201305
  2. (L-CITRULLINE [Concomitant]
  3. L-CARTIN [Concomitant]
  4. UNKNOWN (SODIUM BENZOATE) [Concomitant]
  5. ALEVIATIN (PHENYTOIN) [Concomitant]
  6. TEGRETOL (CARVAMAZEPINE) [Concomitant]
  7. BENAZLIN (NITRAZEPAM) [Concomitant]
  8. PHENOBAL (PHENONARBITAL) [Concomitant]

REACTIONS (5)
  - Gastric haemorrhage [None]
  - Respiratory failure [None]
  - Bedridden [None]
  - Product label issue [None]
  - Hiatus hernia [None]
